FAERS Safety Report 5832688 (Version 12)
Quarter: 2014Q2

REPORT INFORMATION
  Report Type: Spontaneous
  Country: US (occurrence: US)
  Receive Date: 20050707
  Receipt Date: 20140506
  Transmission Date: 20141212
  Serious: Yes (Hospitalization, Disabling, Other)
  Sender: FDA-Public Use
  Company Number: US-ROCHE-409506

PATIENT
  Age: 14 Year
  Sex: Male
  Weight: 99.8 kg

DRUGS (5)
  1. ACCUTANE [Suspect]
     Indication: ACNE
     Route: 048
     Dates: start: 199912, end: 200003
  2. ACCUTANE [Suspect]
     Route: 048
  3. DOXYCYCLINE [Concomitant]
     Indication: ACNE
  4. TRIAZ [Concomitant]
     Indication: ACNE
  5. RETIN-A MICRO [Concomitant]
     Indication: ACNE

REACTIONS (15)
  - Patellofemoral pain syndrome [Unknown]
  - Joint dislocation [Unknown]
  - Skeletal injury [Unknown]
  - Joint injury [Unknown]
  - Epiphyseal injury [Unknown]
  - Arthritis [Unknown]
  - Myalgia [Unknown]
  - Arthralgia [Unknown]
  - Intervertebral disc protrusion [Unknown]
  - Paraesthesia [Unknown]
  - Blood triglycerides increased [Unknown]
  - Peptic ulcer [Unknown]
  - Epistaxis [Unknown]
  - Musculoskeletal pain [Recovering/Resolving]
  - Contusion [Recovering/Resolving]
